FAERS Safety Report 9240511 (Version 1)
Quarter: 2013Q2

REPORT INFORMATION
  Report Type: Report from Study
  Country: GB (occurrence: GB)
  Receive Date: 20130418
  Receipt Date: 20130418
  Transmission Date: 20140414
  Serious: Yes (Hospitalization)
  Sender: FDA-Public Use
  Company Number: GB-AMGEN-GBRCT2012082693

PATIENT
  Age: 86 Year
  Sex: Female
  Weight: 76 kg

DRUGS (2)
  1. ETANERCEPT [Suspect]
     Indication: RHEUMATOID ARTHRITIS
     Dosage: 25 MG, TWICE WEEKLY
     Dates: start: 20041101, end: 20120915
  2. METHOTREXATE [Concomitant]
     Dosage: UNK
     Dates: start: 20091022, end: 20120915

REACTIONS (1)
  - Fall [Unknown]
